FAERS Safety Report 6087572-9 (Version None)
Quarter: 2009Q1

REPORT INFORMATION
  Report Type: 
  Country: None (occurrence: None)
  Receive Date: 20090223
  Receipt Date: 20090218
  Transmission Date: 20090719
  Serious: Yes (Other)
  Sender: FDA-Public Use
  Company Number: US-JNJFOC-20081203632

PATIENT
  Sex: Female
  Weight: 47.63 kg

DRUGS (2)
  1. PEPCID COMPLETE [Suspect]
  2. PEPCID COMPLETE [Suspect]
     Indication: DYSPEPSIA

REACTIONS (3)
  - ASTHMA [None]
  - HYPERSENSITIVITY [None]
  - THERAPEUTIC RESPONSE DECREASED [None]
